FAERS Safety Report 9685169 (Version 1)
Quarter: 2013Q4

REPORT INFORMATION
  Report Type: Spontaneous
  Country: US (occurrence: None)
  Receive Date: 20131112
  Receipt Date: 20131112
  Transmission Date: 20140711
  Serious: Yes (Life-Threatening, Hospitalization, Other)
  Sender: FDA-Public Use
  Company Number: None

PATIENT
  Age: 52 Year
  Sex: Female
  Weight: 66.68 kg

DRUGS (1)
  1. SEROQUEL [Suspect]

REACTIONS (2)
  - Burns third degree [None]
  - Product label issue [None]
